FAERS Safety Report 24703527 (Version 2)
Quarter: 2024Q4

REPORT INFORMATION
  Report Type: Report from Study
  Country: US (occurrence: US)
  Receive Date: 20241205
  Receipt Date: 20241219
  Transmission Date: 20250114
  Serious: Yes (Hospitalization, Other)
  Sender: ACADIA PHARMACEUTICALS
  Company Number: US-ACADIA PHARMACEUTICALS INC.-ACA-2024-TRF-007746

PATIENT
  Age: 17 Year
  Sex: Female
  Weight: 35.8 kg

DRUGS (3)
  1. DAYBUE [Suspect]
     Active Substance: TROFINETIDE
     Indication: Rett syndrome
     Dosage: 30 MILLILITER, BID
     Dates: start: 20230717
  2. FELBAMATE [Concomitant]
     Active Substance: FELBAMATE
     Dosage: 400 MILLIGRAM, TID
  3. CLOBAZAM [Concomitant]
     Active Substance: CLOBAZAM
     Dosage: 40 MILLIGRAM/DAY
     Dates: start: 20151015

REACTIONS (2)
  - Pneumonia [Unknown]
  - Weight decreased [Recovered/Resolved]

NARRATIVE: CASE EVENT DATE: 20240501
